FAERS Safety Report 10783950 (Version 1)
Quarter: 2015Q1

REPORT INFORMATION
  Report Type: Spontaneous
  Country: CN (occurrence: CN)
  Receive Date: 20150210
  Receipt Date: 20150210
  Transmission Date: 20150721
  Serious: Yes (Other)
  Sender: FDA-Public Use
  Company Number: CN-ROCHE-1535804

PATIENT
  Age: 49 Year
  Sex: Male
  Weight: 68 kg

DRUGS (2)
  1. ROCEPHIN [Suspect]
     Active Substance: CEFTRIAXONE SODIUM
     Indication: BRUCELLOSIS
     Route: 042
     Dates: start: 20140901, end: 20140912
  2. GENTAMYCIN SULFATE [Suspect]
     Active Substance: GENTAMICIN SULFATE
     Indication: BRUCELLOSIS
     Route: 041
     Dates: start: 20140901, end: 20140912

REACTIONS (2)
  - Hyperpyrexia [Recovered/Resolved]
  - Arthralgia [Recovered/Resolved]

NARRATIVE: CASE EVENT DATE: 20140912
